FAERS Safety Report 24181471 (Version 1)
Quarter: 2024Q3

REPORT INFORMATION
  Report Type: Report from Study
  Country: US (occurrence: None)
  Receive Date: 20240807
  Receipt Date: 20240807
  Transmission Date: 20241016
  Serious: Yes (Hospitalization)
  Sender: ASTRAZENECA
  Company Number: 2021A033710

PATIENT
  Sex: Female

DRUGS (1)
  1. SYMBICORT [Suspect]
     Active Substance: BUDESONIDE\FORMOTEROL FUMARATE DIHYDRATE
     Indication: Chronic obstructive pulmonary disease
     Dosage: 160/4.5 MCG 2 PUFFS TWICE DAILY STARTING 2014 OR 2015
     Route: 055

REACTIONS (4)
  - Oxygen saturation decreased [Unknown]
  - Lung disorder [Unknown]
  - Product dose omission issue [Unknown]
  - Product distribution issue [Unknown]
